FAERS Safety Report 6744702-0 (Version None)
Quarter: 2010Q2

REPORT INFORMATION
  Report Type: 
  Country: None (occurrence: None)
  Receive Date: 20100526
  Receipt Date: 20100526
  Transmission Date: 20101027
  Serious: Yes (Life-Threatening)
  Sender: FDA-Public Use
  Company Number: None

PATIENT
  Sex: Male
  Weight: 88.95 kg

DRUGS (9)
  1. SUTENT [Suspect]
     Dosage: 50 MG BY BY MOUTH DAILY
     Route: 048
     Dates: start: 20071005, end: 20071102
  2. COLACE [Concomitant]
  3. PROVIGIL [Concomitant]
  4. OSCAL [Concomitant]
  5. POTASSIUM GLUCONATE TAB [Concomitant]
  6. ECOTRIN [Concomitant]
  7. VIT C [Concomitant]
  8. ZINC [Concomitant]
  9. ALTACE [Concomitant]

REACTIONS (1)
  - PULMONARY EMBOLISM [None]
